FAERS Safety Report 6283060-5 (Version None)
Quarter: 2009Q3

REPORT INFORMATION
  Report Type: 
  Country: None (occurrence: None)
  Receive Date: 20090724
  Receipt Date: 20090714
  Transmission Date: 20100115
  Serious: Yes (Hospitalization, Other)
  Sender: FDA-Public Use
  Company Number: JP-PFIZER INC-2009235450

PATIENT
  Age: 71 Year

DRUGS (13)
  1. AZULFIDINE [Suspect]
     Indication: RHEUMATOID ARTHRITIS
     Dosage: 500 MG, 2X/DAY
     Route: 048
     Dates: start: 20090610
  2. AZULFIDINE [Suspect]
     Indication: FEMORAL NECK FRACTURE
  3. RIDAURA [Concomitant]
     Route: 048
     Dates: end: 20090609
  4. MAINTATE [Concomitant]
     Route: 048
  5. LOSARTAN POTASSIUM AND HYDROCHLOROTHIAZIDE [Concomitant]
     Route: 048
  6. ALOSITOL [Concomitant]
     Route: 048
  7. GASTER [Concomitant]
     Route: 048
  8. ALLELOCK [Concomitant]
     Route: 048
  9. BERIZYM [Concomitant]
     Route: 048
  10. GLORIAMIN [Concomitant]
     Route: 048
  11. ERISPAN [Concomitant]
     Route: 048
  12. ALENDRONATE SODIUM [Concomitant]
     Route: 048
  13. PREDNISOLONE [Concomitant]
     Route: 048

REACTIONS (1)
  - PANCYTOPENIA [None]
